FAERS Safety Report 6235692-8 (Version None)
Quarter: 2009Q2

REPORT INFORMATION
  Report Type: 
  Country: None (occurrence: None)
  Receive Date: 20090618
  Receipt Date: 20090612
  Transmission Date: 20091009
  Serious: Yes (Life-Threatening, Hospitalization)
  Sender: FDA-Public Use
  Company Number: DE-ELI_LILLY_AND_COMPANY-DE200905003400

PATIENT
  Sex: Female

DRUGS (7)
  1. BYETTA [Suspect]
     Indication: OBESITY
     Dosage: 5 UG, 2/D
     Route: 058
     Dates: start: 20070620
  2. BYETTA [Suspect]
     Dosage: 10 UG, 2/D
     Route: 058
     Dates: start: 20070719, end: 20080825
  3. METFORMIN HCL [Concomitant]
     Dosage: UNK, 2/D
     Route: 065
  4. L-THYROXIN [Concomitant]
     Dosage: UNK, DAILY (1/D)
     Route: 065
  5. ENALAPRIL [Concomitant]
     Dosage: 10 MG, 2/D
     Route: 065
  6. METO-TABLINEN [Concomitant]
     Dosage: UNK, DAILY (1/D)
     Route: 065
  7. OMEPRAZOL [Concomitant]
     Dosage: UNK, DAILY (1/D)
     Route: 065

REACTIONS (2)
  - MYASTHENIA GRAVIS [None]
  - OFF LABEL USE [None]
